FAERS Safety Report 4319381-2 (Version None)
Quarter: 2004Q1

REPORT INFORMATION
  Report Type: 
  Country: None (occurrence: None)
  Receive Date: 20040318
  Receipt Date: 20040318
  Transmission Date: 20041129
  Serious: Yes (Other)
  Sender: FDA-Public Use
  Company Number: None

PATIENT
  Age: 54 Year
  Sex: Female
  Weight: 91.6266 kg

DRUGS (2)
  1. GEMCITABINE 200 MG/10 ML LILLY [Suspect]
     Indication: PANCREATIC CARCINOMA
     Dosage: 1000 MG M2 INTRAVENOUS
     Route: 042
     Dates: start: 20040301, end: 20040315
  2. ETANERCEPT 25 MG/ VIAL IMMUNEX CORP. [Suspect]
     Indication: PANCREATIC CARCINOMA
     Dosage: 25 MG TWICE WEEK SUBCUTANEOUS
     Route: 058
     Dates: start: 20040223, end: 20040315

REACTIONS (1)
  - MEDICATION ERROR [None]
